FAERS Safety Report 7077230-6 (Version None)
Quarter: 2010Q4

REPORT INFORMATION
  Report Type: 
  Country: None (occurrence: None)
  Receive Date: 20101101
  Receipt Date: 20101019
  Transmission Date: 20110411
  Serious: Yes (Hospitalization)
  Sender: FDA-Public Use
  Company Number: US-ELI_LILLY_AND_COMPANY-US201010004397

PATIENT
  Sex: Female

DRUGS (22)
  1. GEMCITABINE HCL [Suspect]
     Indication: PANCREATIC CARCINOMA
     Dosage: 1000 MG/M2, WEEKLY (1/W)
     Route: 042
     Dates: start: 20091111, end: 20100217
  2. OTHER PHARMA COMPANY INV DRUG [Suspect]
     Dosage: 49 MG/KG, WEEKLY (1/W)
     Route: 042
     Dates: start: 20091111, end: 20100217
  3. COMPAZINE [Concomitant]
  4. DEXAMETHASONE [Concomitant]
  5. DILAUDID [Concomitant]
  6. FENTANYL CITRATE [Concomitant]
  7. FLOMAX [Concomitant]
  8. LASIX [Concomitant]
  9. NEXIUM [Concomitant]
  10. NYSTATIN [Concomitant]
  11. SLOW-FE [Concomitant]
  12. VICODIN ES [Concomitant]
  13. ZOFRAN [Concomitant]
  14. ATIVAN [Concomitant]
  15. PROZAC [Concomitant]
  16. PREMPRO [Concomitant]
  17. AMLODIPINE [Concomitant]
  18. ASPIRIN [Concomitant]
  19. VITAMIN E [Concomitant]
  20. VITAMIN B-12 [Concomitant]
  21. CALCIUM [Concomitant]
  22. VITAMIN D [Concomitant]

REACTIONS (1)
  - HYPOXIA [None]
